FAERS Safety Report 16470960 (Version 1)
Quarter: 2019Q2

REPORT INFORMATION
  Report Type: Spontaneous
  Country: US (occurrence: US)
  Receive Date: 20190624
  Receipt Date: 20190624
  Transmission Date: 20190711
  Serious: Yes (Hospitalization, Other)
  Sender: FDA-Public Use
  Company Number: US-JNJFOC-20190623431

PATIENT
  Age: 52 Year
  Sex: Male

DRUGS (1)
  1. INVOKANA [Suspect]
     Active Substance: CANAGLIFLOZIN
     Indication: PRODUCT USED FOR UNKNOWN INDICATION
     Route: 048
     Dates: end: 20170728

REACTIONS (5)
  - Gangrene [Unknown]
  - Toe amputation [Unknown]
  - Drug ineffective [Unknown]
  - Osteomyelitis [Unknown]
  - Burns third degree [Unknown]

NARRATIVE: CASE EVENT DATE: 2017
